FAERS Safety Report 14182956 (Version 2)
Quarter: 2017Q4

REPORT INFORMATION
  Report Type: Spontaneous
  Country: FR (occurrence: FR)
  Receive Date: 20171113
  Receipt Date: 20171115
  Transmission Date: 20180321
  Serious: Yes (Other)
  Sender: FDA-Public Use
  Company Number: FR-GLAXOSMITHKLINE-FR2017GSK171860

PATIENT
  Sex: Female

DRUGS (1)
  1. SALBUMOL [Suspect]
     Active Substance: ALBUTEROL SULFATE
     Indication: UTERINE CONTRACTIONS DURING PREGNANCY
     Dosage: 1 UNK, UNK
     Route: 042
     Dates: start: 201506, end: 201506

REACTIONS (6)
  - Foetal movement disorder [Unknown]
  - Foetal death [Unknown]
  - Stillbirth [Unknown]
  - Vomiting [Unknown]
  - Labour complication [Unknown]
  - Exposure during pregnancy [Unknown]

NARRATIVE: CASE EVENT DATE: 201506
